FAERS Safety Report 6321314-4 (Version None)
Quarter: 2009Q3

REPORT INFORMATION
  Report Type: 
  Country: None (occurrence: None)
  Receive Date: 20090822
  Receipt Date: 20090114
  Transmission Date: 20100115
  Serious: No
  Sender: FDA-Public Use
  Company Number: US-ABBOTT-09P-163-0497726-00

PATIENT
  Sex: Female

DRUGS (1)
  1. NIASPAN [Suspect]
     Indication: DRUG USE FOR UNKNOWN INDICATION
     Dates: start: 20081230

REACTIONS (5)
  - FLUSHING [None]
  - HEADACHE [None]
  - PRURITUS [None]
  - SENSORY DISTURBANCE [None]
  - SKIN BURNING SENSATION [None]
